FAERS Safety Report 26218535 (Version 1)
Quarter: 2025Q4

REPORT INFORMATION
  Report Type: Spontaneous
  Country: AU (occurrence: AU)
  Receive Date: 20251231
  Receipt Date: 20251231
  Transmission Date: 20260118
  Serious: No
  Sender: MYLAN
  Company Number: AU-MYLANLABS-2025M1109236

PATIENT

DRUGS (3)
  1. EPIPEN [Suspect]
     Active Substance: EPINEPHRINE
     Indication: Product used for unknown indication
     Dosage: UNK
  2. EPIPEN [Suspect]
     Active Substance: EPINEPHRINE
     Dosage: UNK
  3. EPIPEN [Suspect]
     Active Substance: EPINEPHRINE
     Dosage: UNK

REACTIONS (1)
  - Product quality issue [Unknown]
